FAERS Safety Report 24215691 (Version 1)
Quarter: 2024Q3

REPORT INFORMATION
  Report Type: Spontaneous
  Country: IT (occurrence: IT)
  Receive Date: 20240816
  Receipt Date: 20240816
  Transmission Date: 20241017
  Serious: Yes (Other)
  Sender: TEVA
  Company Number: None

PATIENT
  Age: 65 Year
  Sex: Female

DRUGS (2)
  1. FLUOROURACIL [Suspect]
     Active Substance: FLUOROURACIL
     Indication: Pancreatic carcinoma
     Dosage: 2700 MG
     Route: 042
     Dates: start: 20240628, end: 20240628
  2. IRINOTECAN SUCROSOFATE [Suspect]
     Active Substance: IRINOTECAN SUCROSOFATE
     Indication: Pancreatic carcinoma
     Dosage: 80 MG
     Route: 042
     Dates: start: 20240628, end: 20240628

REACTIONS (1)
  - Neutropenia [Not Recovered/Not Resolved]

NARRATIVE: CASE EVENT DATE: 20240711
